FAERS Safety Report 6922483-5 (Version None)
Quarter: 2010Q3

REPORT INFORMATION
  Report Type: 
  Country: None (occurrence: None)
  Receive Date: 20100813
  Receipt Date: 20100803
  Transmission Date: 20110219
  Serious: Yes (Other)
  Sender: FDA-Public Use
  Company Number: US-BAYER-201025026NA

PATIENT
  Age: 39 Year
  Sex: Female

DRUGS (13)
  1. MAGNEVIST [Suspect]
     Indication: NUCLEAR MAGNETIC RESONANCE IMAGING
  2. OMNISCAN [Suspect]
     Indication: NUCLEAR MAGNETIC RESONANCE IMAGING
  3. OPTIMARK [Suspect]
     Indication: NUCLEAR MAGNETIC RESONANCE IMAGING
  4. MULTIHANCE [Suspect]
     Indication: NUCLEAR MAGNETIC RESONANCE IMAGING
  5. PROHANCE [Suspect]
     Indication: NUCLEAR MAGNETIC RESONANCE IMAGING
  6. UNKNOWN GBCA [Suspect]
     Indication: NUCLEAR MAGNETIC RESONANCE IMAGING
     Dates: start: 20010801, end: 20010801
  7. UNKNOWN GBCA [Suspect]
     Dates: start: 20051026, end: 20051026
  8. ANALGESICS [Concomitant]
  9. ^PRECINSONE^ [Concomitant]
  10. SYNTHROID [Concomitant]
  11. EPOGEN [Concomitant]
  12. IRON [Concomitant]
  13. TACROLIMUS [Concomitant]

REACTIONS (9)
  - ABASIA [None]
  - DEFORMITY [None]
  - DYSPNOEA [None]
  - DYSSTASIA [None]
  - GAIT DISTURBANCE [None]
  - MUSCULAR WEAKNESS [None]
  - NEPHROGENIC SYSTEMIC FIBROSIS [None]
  - PAIN [None]
  - SKIN INDURATION [None]
